FAERS Safety Report 17449574 (Version 2)
Quarter: 2020Q1

REPORT INFORMATION
  Report Type: Spontaneous
  Country: IN (occurrence: IN)
  Receive Date: 20200224
  Receipt Date: 20200305
  Transmission Date: 20200409
  Serious: Yes (Other)
  Sender: FDA-Public Use
  Company Number: IN-STRIDES ARCOLAB LIMITED-2020SP001710

PATIENT
  Age: 13 Year
  Sex: Female

DRUGS (2)
  1. DIETHYLCARBAMAZINE [Suspect]
     Active Substance: DIETHYLCARBAMAZINE
     Indication: FILARIASIS LYMPHATIC
     Dosage: UNK; (DOUBLE DRUG THERAPY)
     Route: 065
  2. ALBENDAZOLE. [Suspect]
     Active Substance: ALBENDAZOLE
     Indication: FILARIASIS LYMPHATIC
     Dosage: UNK (DOUBLE DRUG THERAPY)
     Route: 065

REACTIONS (9)
  - Groin pain [Recovered/Resolved]
  - Inguinal mass [Recovered/Resolved]
  - Peripheral swelling [Recovered/Resolved]
  - Oedema [Recovered/Resolved]
  - Lymphadenitis [Recovered/Resolved]
  - Off label use [Unknown]
  - Lymphadenopathy [Recovered/Resolved]
  - Joint swelling [Recovered/Resolved]
  - Lymphoedema [Recovered/Resolved]
